FAERS Safety Report 8008555-5 (Version None)
Quarter: 2011Q4

REPORT INFORMATION
  Report Type: 
  Country: None (occurrence: None)
  Receive Date: 20111227
  Receipt Date: 20111216
  Transmission Date: 20120403
  Serious: Yes (Other)
  Sender: FDA-Public Use
  Company Number: ES-ASTRAZENECA-2011SE76721

PATIENT
  Age: 74 Year
  Sex: Female

DRUGS (2)
  1. IRESSA [Suspect]
     Indication: NON-SMALL CELL LUNG CANCER
     Dosage: 250 MG 3X10 FILM COATED TABLETS
     Route: 048
     Dates: start: 20101101, end: 20110901
  2. IRESSA [Suspect]
     Route: 048
     Dates: start: 20111005

REACTIONS (1)
  - CONFUSIONAL STATE [None]
